FAERS Safety Report 24228898 (Version 1)
Quarter: 2024Q3

REPORT INFORMATION
  Report Type: Report from Study
  Country: US (occurrence: US)
  Receive Date: 20240820
  Receipt Date: 20240820
  Transmission Date: 20241016
  Serious: Yes (Death)
  Sender: AMGEN
  Company Number: US-AMGEN-USASP2024156921

PATIENT
  Sex: Male

DRUGS (1)
  1. TARLATAMAB [Suspect]
     Active Substance: TARLATAMAB
     Indication: Small cell lung cancer extensive stage
     Dosage: UNK
     Route: 065
     Dates: start: 202405

REACTIONS (1)
  - Death [Fatal]

NARRATIVE: CASE EVENT DATE: 20240724
